FAERS Safety Report 7437282-8 (Version None)
Quarter: 2011Q2

REPORT INFORMATION
  Report Type: 
  Country: None (occurrence: None)
  Receive Date: 20110426
  Receipt Date: 20110411
  Transmission Date: 20111010
  Serious: Yes (Other)
  Sender: FDA-Public Use
  Company Number: DE-CELGENEUS-062-21880-11032222

PATIENT
  Age: 73 Year
  Sex: Male

DRUGS (6)
  1. ALLOPURINOL [Concomitant]
     Route: 065
  2. TORSEMIDE [Concomitant]
     Indication: HYPERTENSION
     Route: 065
  3. METOPROLOL [Concomitant]
     Indication: HYPERTENSION
     Route: 065
  4. RAMIPRIL [Concomitant]
     Indication: HYPERTENSION
     Route: 065
  5. REVLIMID [Suspect]
     Indication: MULTIPLE MYELOMA
     Dosage: 15 MILLIGRAM
     Route: 048
     Dates: start: 20101104, end: 20101110
  6. REVLIMID [Suspect]
     Dosage: 5 MILLIGRAM
     Route: 048
     Dates: start: 20110216, end: 20110224

REACTIONS (1)
  - HICCUPS [None]
